FAERS Safety Report 14398757 (Version 5)
Quarter: 2018Q2

REPORT INFORMATION
  Report Type: Report from Study
  Country: US (occurrence: US)
  Receive Date: 20180117
  Receipt Date: 20180510
  Transmission Date: 20180711
  Serious: Yes (Other)
  Sender: FDA-Public Use
  Company Number: PHEH2018US002008

PATIENT
  Age: 47 Year
  Sex: Male
  Weight: 101.59 kg

DRUGS (2)
  1. AFINITOR [Suspect]
     Active Substance: EVEROLIMUS
     Indication: ANGIOMYOLIPOMA
  2. AFINITOR [Suspect]
     Active Substance: EVEROLIMUS
     Indication: ASTROCYTOMA, LOW GRADE
     Dosage: 2.5 MG, QD
     Route: 048
     Dates: start: 20180112

REACTIONS (7)
  - Decreased appetite [Not Recovered/Not Resolved]
  - Hypertension [Unknown]
  - Blood urine present [Recovering/Resolving]
  - Haemorrhage urinary tract [Recovered/Resolved]
  - Neoplasm progression [Unknown]
  - Mood altered [Recovering/Resolving]
  - Fall [Unknown]

NARRATIVE: CASE EVENT DATE: 20180115
